FAERS Safety Report 4358091-2 (Version None)
Quarter: 2004Q2

REPORT INFORMATION
  Report Type: 
  Country: None (occurrence: None)
  Receive Date: 20040514
  Receipt Date: 20040505
  Transmission Date: 20050107
  Serious: Yes (Hospitalization)
  Sender: FDA-Public Use
  Company Number: IE-BRISTOL-MYERS SQUIBB COMPANY-12584470

PATIENT

DRUGS (1)
  1. ERBITUX [Suspect]
     Route: 041

REACTIONS (1)
  - RESPIRATORY ARREST [None]
